FAERS Safety Report 5877225-1 (Version None)
Quarter: 2008Q3

REPORT INFORMATION
  Report Type: 
  Country: None (occurrence: None)
  Receive Date: 20080910
  Receipt Date: 20080829
  Transmission Date: 20090109
  Serious: Yes (Other)
  Sender: FDA-Public Use
  Company Number: US-PFIZER INC-2008066834

PATIENT
  Age: 61 Year
  Sex: Male
  Weight: 101.6 kg

DRUGS (1)
  1. CHANTIX [Suspect]
     Indication: NICOTINE DEPENDENCE

REACTIONS (4)
  - AGITATION [None]
  - ANGER [None]
  - DEPRESSION [None]
  - SUICIDAL IDEATION [None]
